FAERS Safety Report 12249420 (Version 19)
Quarter: 2018Q1

REPORT INFORMATION
  Report Type: Report from Study
  Country: CA (occurrence: CA)
  Receive Date: 20160408
  Receipt Date: 20180205
  Transmission Date: 20180508
  Serious: Yes (Hospitalization, Other)
  Sender: FDA-Public Use
  Company Number: PHHY2015CA054773

PATIENT
  Age: 20 Year
  Sex: Female

DRUGS (8)
  1. SANDOSTATIN LAR DEPOT [Suspect]
     Active Substance: OCTREOTIDE ACETATE
     Indication: NEUROENDOCRINE CARCINOMA
     Dosage: UNK UNK, QMO
     Route: 030
     Dates: start: 201502
  2. SANDOSTATIN LAR DEPOT [Suspect]
     Active Substance: OCTREOTIDE ACETATE
     Dosage: 30 MG, QMO (EVERY 4 WEEKS)
     Route: 030
     Dates: start: 20161104, end: 20161230
  3. SANDOSTATIN LAR DEPOT [Suspect]
     Active Substance: OCTREOTIDE ACETATE
     Dosage: 10 MG, QMO (EVERY 4 WEEKS)
     Route: 030
     Dates: start: 20160430, end: 20160430
  4. SANDOSTATIN LAR DEPOT [Suspect]
     Active Substance: OCTREOTIDE ACETATE
     Dosage: 10 MG, BIW, EVERY 2 WEEKS
     Route: 030
     Dates: start: 20160516, end: 20160530
  5. SANDOSTATIN [Suspect]
     Active Substance: OCTREOTIDE ACETATE
     Indication: NEUROENDOCRINE CARCINOMA
     Dosage: 200 UG, BID TO TID PRN
     Route: 058
     Dates: start: 20150501, end: 2015
  6. SANDOSTATIN LAR DEPOT [Suspect]
     Active Substance: OCTREOTIDE ACETATE
     Dosage: 20 MG, QMO (EVERY 4 WEEKS)
     Route: 030
     Dates: start: 20160324, end: 20160324
  7. SANDOSTATIN LAR DEPOT [Suspect]
     Active Substance: OCTREOTIDE ACETATE
     Dosage: 30 MG, QMO
     Route: 030
     Dates: start: 20150605
  8. SANDOSTATIN LAR DEPOT [Suspect]
     Active Substance: OCTREOTIDE ACETATE
     Dosage: 10 MG, QMO
     Route: 030

REACTIONS (26)
  - Arrhythmia [Unknown]
  - Fall [Unknown]
  - Heart rate increased [Unknown]
  - Inappropriate schedule of drug administration [Unknown]
  - Palpitations [Unknown]
  - Panic disorder [Unknown]
  - Injection site reaction [Unknown]
  - Drug ineffective [Unknown]
  - Influenza [Unknown]
  - Myocardial infarction [Unknown]
  - Back pain [Unknown]
  - Feeling abnormal [Unknown]
  - Asthenia [Not Recovered/Not Resolved]
  - Cholelithiasis [Unknown]
  - Respiratory rate increased [Not Recovered/Not Resolved]
  - Chest pain [Recovering/Resolving]
  - Flushing [Not Recovered/Not Resolved]
  - Dyspnoea [Recovering/Resolving]
  - Pain in extremity [Unknown]
  - Malaise [Unknown]
  - Diarrhoea [Unknown]
  - Anxiety [Not Recovered/Not Resolved]
  - Abdominal pain [Not Recovered/Not Resolved]
  - Chest discomfort [Unknown]
  - Movement disorder [Unknown]
  - Pain [Unknown]

NARRATIVE: CASE EVENT DATE: 20150515
